FAERS Safety Report 16177171 (Version 1)
Quarter: 2019Q2

REPORT INFORMATION
  Report Type: Spontaneous
  Country: GB (occurrence: GB)
  Receive Date: 20190410
  Receipt Date: 20190410
  Transmission Date: 20190711
  Serious: Yes (Hospitalization)
  Sender: FDA-Public Use
  Company Number: GB-CONCORDIA PHARMACEUTICALS INC.-E2B_00019343

PATIENT
  Age: 89 Year
  Sex: Female
  Weight: 48.2 kg

DRUGS (10)
  1. DIGOXIN. [Suspect]
     Active Substance: DIGOXIN
     Indication: ATRIAL FIBRILLATION
     Dosage: IN THE MORNING
     Route: 048
     Dates: start: 20180501, end: 20190319
  2. AMOXICILLIN. [Concomitant]
     Active Substance: AMOXICILLIN
     Indication: CELLULITIS
     Dates: end: 20190318
  3. BRALTUS [Concomitant]
     Active Substance: TIOTROPIUM BROMIDE
  4. ALENDRONIC ACID [Concomitant]
     Active Substance: ALENDRONIC ACID
  5. SALBUTAMOL [Concomitant]
     Active Substance: ALBUTEROL
  6. RIVAROXABAN [Concomitant]
     Active Substance: RIVAROXABAN
  7. SIRDUPLA [Concomitant]
     Active Substance: FLUTICASONE PROPIONATE\SALMETEROL XINAFOATE
  8. ATORVASTATIN [Concomitant]
     Active Substance: ATORVASTATIN
  9. CLARITHROMYCIN. [Concomitant]
     Active Substance: CLARITHROMYCIN
  10. ACCRETE D3 [Concomitant]
     Active Substance: CALCIUM CARBONATE\CHOLECALCIFEROL

REACTIONS (7)
  - Toxicity to various agents [Unknown]
  - Hallucination, visual [Unknown]
  - Confusional state [Unknown]
  - Lethargy [Unknown]
  - Delirium [Recovering/Resolving]
  - Condition aggravated [Unknown]
  - Mobility decreased [Unknown]

NARRATIVE: CASE EVENT DATE: 20190317
